FAERS Safety Report 18503814 (Version 3)
Quarter: 2020Q4

REPORT INFORMATION
  Report Type: Spontaneous
  Country: AT (occurrence: AT)
  Receive Date: 20201113
  Receipt Date: 20201125
  Transmission Date: 20210114
  Serious: Yes (Death, Hospitalization, Other)
  Sender: FDA-Public Use
  Company Number: AT-GILEAD-2020-0480795

PATIENT
  Age: 58 Year
  Sex: Male
  Weight: 66.9 kg

DRUGS (2)
  1. YESCARTA [Suspect]
     Active Substance: AXICABTAGENE CILOLEUCEL
     Dosage: UNK
     Route: 042
     Dates: start: 20200520, end: 20200520
  2. YESCARTA [Suspect]
     Active Substance: AXICABTAGENE CILOLEUCEL
     Indication: LYMPHOMA
     Dosage: UNK
     Route: 042
     Dates: start: 20191105, end: 20191105

REACTIONS (5)
  - Death [Fatal]
  - Drug ineffective [Not Recovered/Not Resolved]
  - Lymphoma [Not Recovered/Not Resolved]
  - Ocular neoplasm [Recovered/Resolved]
  - Central nervous system lesion [Not Recovered/Not Resolved]

NARRATIVE: CASE EVENT DATE: 20200511
